FAERS Safety Report 4726199-5 (Version None)
Quarter: 2005Q3

REPORT INFORMATION
  Report Type: 
  Country: None (occurrence: None)
  Receive Date: 20050727
  Receipt Date: 20040831
  Transmission Date: 20060218
  Serious: Yes (Hospitalization)
  Sender: FDA-Public Use
  Company Number: FR-BRISTOL-MYERS SQUIBB COMPANY-12688305

PATIENT
  Age: 61 Year
  Sex: Male

DRUGS (3)
  1. PRAVASTATIN [Suspect]
     Route: 048
     Dates: end: 20040413
  2. IMOVANE [Suspect]
     Route: 048
     Dates: end: 20040413
  3. ATARAX [Concomitant]
     Route: 048
     Dates: start: 20040411, end: 20040413

REACTIONS (3)
  - BLOOD CREATINE PHOSPHOKINASE INCREASED [None]
  - CYTOLYTIC HEPATITIS [None]
  - RENAL FAILURE ACUTE [None]
